FAERS Safety Report 5056171-X (Version None)
Quarter: 2006Q3

REPORT INFORMATION
  Report Type: 
  Country: None (occurrence: None)
  Receive Date: 20060717
  Receipt Date: 20060707
  Transmission Date: 20061208
  Serious: Yes (Hospitalization)
  Sender: FDA-Public Use
  Company Number: 2006P1000268

PATIENT
  Age: 38 Year
  Weight: 106 kg

DRUGS (2)
  1. RETEPLASE (RETEPLASE) [Suspect]
     Indication: ACUTE MYOCARDIAL INFARCTION
     Dosage: 5 IU;2X;IV
     Route: 042
     Dates: start: 20060113, end: 20060113
  2. REOPRO [Suspect]
     Indication: ACUTE MYOCARDIAL INFARCTION
     Dosage: 13.3 ML;1X;IV; SEE IMAGE
     Route: 042
     Dates: start: 20060113, end: 20060113

REACTIONS (1)
  - CORONARY ARTERY STENOSIS [None]
